FAERS Safety Report 13644273 (Version 2)
Quarter: 2017Q3

REPORT INFORMATION
  Report Type: Spontaneous
  Country: US (occurrence: US)
  Receive Date: 20170612
  Receipt Date: 20170719
  Transmission Date: 20171127
  Serious: Yes (Death)
  Sender: FDA-Public Use
  Company Number: US-CELGENEUS-USA-20170600839

PATIENT

DRUGS (3)
  1. VIDAZA [Suspect]
     Active Substance: AZACITIDINE
     Indication: MYELODYSPLASTIC SYNDROME
     Dosage: 75 MILLIGRAM/SQ. METER
     Route: 065
  2. VOSAROXIN [Suspect]
     Active Substance: VOSAROXIN
     Dosage: 34 MILLIGRAM/SQ. METER
     Route: 065
  3. VOSAROXIN [Suspect]
     Active Substance: VOSAROXIN
     Indication: MYELODYSPLASTIC SYNDROME
     Dosage: 50 MILLIGRAM/SQ. METER
     Route: 065

REACTIONS (1)
  - Pulmonary alveolar haemorrhage [Fatal]
